FAERS Safety Report 7784425-2 (Version None)
Quarter: 2011Q3

REPORT INFORMATION
  Report Type: 
  Country: None (occurrence: None)
  Receive Date: 20110928
  Receipt Date: 20110922
  Transmission Date: 20111222
  Serious: Yes (Hospitalization)
  Sender: FDA-Public Use
  Company Number: US-ROXANE LABORATORIES, INC.-2011-RO-01294RO

PATIENT
  Sex: Male

DRUGS (22)
  1. NORVASC [Concomitant]
     Indication: BLOOD PRESSURE
     Dosage: 10 MG
  2. POTASSIUM CHLORIDE [Concomitant]
  3. CENTRUM [Concomitant]
  4. FLUTICASONE PROPIONATE [Suspect]
     Route: 045
     Dates: start: 19960101
  5. ALTACE [Concomitant]
     Indication: BLOOD PRESSURE
     Dosage: 20 MG
  6. CATAPRES [Concomitant]
     Indication: BLOOD PRESSURE
     Route: 062
  7. FLONASE [Concomitant]
     Indication: SLEEP APNOEA SYNDROME
     Route: 045
  8. XANAX [Concomitant]
     Indication: PANIC ATTACK
  9. ASPIRIN [Concomitant]
  10. MAXIDE HCTZ/TRIAMTERENE [Concomitant]
     Indication: BLOOD PRESSURE
  11. VENTOLIN/PROVENTIL [Concomitant]
  12. CENTRUM [Concomitant]
  13. ACTOS [Concomitant]
     Indication: BLOOD GLUCOSE ABNORMAL
     Dosage: 15 MG
  14. LANOXIN [Concomitant]
     Indication: HEART RATE
  15. CARDIZEM [Concomitant]
     Indication: BLOOD PRESSURE
     Dosage: 240 MG
  16. XANAX [Concomitant]
  17. POTASSIUM CHLORIDE [Concomitant]
     Indication: BLOOD POTASSIUM DECREASED
     Dosage: 110 MEQ
  18. ASPIRIN [Concomitant]
  19. LANTUS [Concomitant]
     Indication: BLOOD GLUCOSE ABNORMAL
  20. MAXIDE HCTZ/TRIAMTERENE [Concomitant]
     Indication: DIURETIC THERAPY
  21. AMARYL [Concomitant]
     Indication: BLOOD GLUCOSE ABNORMAL
     Dosage: 4 MG
  22. VENTOLIN/PROVENTIL [Concomitant]
     Indication: ASTHMA
     Route: 055

REACTIONS (1)
  - EPISTAXIS [None]
